FAERS Safety Report 8769290 (Version 2)
Quarter: 2013Q4

REPORT INFORMATION
  Report Type: Spontaneous
  Country: US (occurrence: US)
  Receive Date: 20120904
  Receipt Date: 20131223
  Transmission Date: 20140711
  Serious: Yes (Death, Hospitalization)
  Sender: FDA-Public Use
  Company Number: US-B.I. PHARMACEUTICALS,INC./RIDGEFIELD-2012-BP-21277BP

PATIENT
  Age: 83 Year
  Sex: Male
  Weight: 81.65 kg

DRUGS (10)
  1. PRADAXA [Suspect]
     Indication: ANTICOAGULANT THERAPY
     Dosage: 150 MG
     Dates: start: 20110816, end: 20110912
  2. PRADAXA [Suspect]
     Indication: ATRIAL FIBRILLATION
  3. ASPIRIN [Concomitant]
     Dosage: 81 MG
  4. CLONIDINE PATCH [Concomitant]
  5. COQ 10 [Concomitant]
  6. DOXAZOSIN [Concomitant]
  7. IRON [Concomitant]
  8. LISINOPRIL [Concomitant]
  9. SIMVASTATIN [Concomitant]
  10. TICLID [Concomitant]

REACTIONS (3)
  - Respiratory failure [Fatal]
  - Subdural haematoma [Fatal]
  - Fall [Unknown]
